FAERS Safety Report 7266312-1 (Version None)
Quarter: 2011Q1

REPORT INFORMATION
  Report Type: 
  Country: None (occurrence: None)
  Receive Date: 20110131
  Receipt Date: 20110117
  Transmission Date: 20110831
  Serious: Yes (Hospitalization, Other)
  Sender: FDA-Public Use
  Company Number: US-ACTELION-A-US2011-44108

PATIENT

DRUGS (19)
  1. PROTONIX [Concomitant]
  2. TRACLEER [Suspect]
     Dosage: 125 MG, BID
     Route: 048
     Dates: start: 20100611, end: 20101201
  3. SYNTHROID [Concomitant]
  4. CITALOPRAM HYDROBROMIDE [Concomitant]
  5. NEPHROCAPS [Concomitant]
  6. COLACE [Concomitant]
  7. TRACLEER [Suspect]
     Indication: PULMONARY ARTERIAL HYPERTENSION
     Dosage: 125 MG, BID
     Route: 048
     Dates: start: 20101201, end: 20101201
  8. DULCOLAX [Concomitant]
  9. REGLAN [Concomitant]
  10. PHOSLO [Concomitant]
  11. TESTOSTERONE [Concomitant]
  12. TRACLEER [Suspect]
     Dosage: 62.5 MG, BID
     Route: 048
     Dates: start: 20101222
  13. REVATIO [Concomitant]
  14. AMBIEN [Concomitant]
  15. CATAPRES [Concomitant]
  16. TRACLEER [Suspect]
     Dosage: 62.5 MG, BID
     Route: 048
     Dates: start: 20100511, end: 20100610
  17. CAPOTEN [Concomitant]
  18. CARDIZEM [Concomitant]
  19. OXYCODONE HCL [Concomitant]

REACTIONS (7)
  - DYSPNOEA [None]
  - BLOOD BILIRUBIN INCREASED [None]
  - PNEUMONIA [None]
  - LIVER FUNCTION TEST ABNORMAL [None]
  - ASPARTATE AMINOTRANSFERASE INCREASED [None]
  - BLOOD ALKALINE PHOSPHATASE INCREASED [None]
  - ALANINE AMINOTRANSFERASE INCREASED [None]
